FAERS Safety Report 10390538 (Version 1)
Quarter: 2014Q3

REPORT INFORMATION
  Report Type: Spontaneous
  Country: GB (occurrence: None)
  Receive Date: 20140814
  Receipt Date: 20140814
  Transmission Date: 20150326
  Serious: Yes (Disabling)
  Sender: FDA-Public Use
  Company Number: AUR-APL-2014-08467

PATIENT
  Age: 53 Year
  Sex: Male
  Weight: 120 kg

DRUGS (2)
  1. STALEVO (CARBIDOPA, ENTACAPONE, LEVODOPA) [Concomitant]
  2. PRAMIPEXOLE [Suspect]
     Active Substance: PRAMIPEXOLE
     Indication: PARKINSON^S DISEASE
     Route: 048
     Dates: start: 20130918, end: 20140202

REACTIONS (2)
  - Intentional product misuse [None]
  - Voyeurism [None]

NARRATIVE: CASE EVENT DATE: 20130918
